FAERS Safety Report 11854123 (Version 3)
Quarter: 2016Q3

REPORT INFORMATION
  Report Type: Spontaneous
  Country: US (occurrence: US)
  Receive Date: 20151220
  Receipt Date: 20160718
  Transmission Date: 20161109
  Serious: Yes (Other)
  Sender: FDA-Public Use
  Company Number: US-TEVA-619458USA

PATIENT
  Age: 39 Year
  Sex: Female

DRUGS (5)
  1. ZECUITY [Suspect]
     Active Substance: SUMATRIPTAN SUCCINATE
     Indication: MIGRAINE
     Route: 062
     Dates: start: 20151204
  2. LEVAQUIN [Concomitant]
     Active Substance: LEVOFLOXACIN
  3. MORPHINE [Concomitant]
     Active Substance: MORPHINE
  4. NALBUPHINE [Concomitant]
     Active Substance: NALBUPHINE
  5. IMITREX [Concomitant]
     Active Substance: SUMATRIPTAN SUCCINATE
     Dosage: STAT DOSE

REACTIONS (6)
  - Burns second degree [Recovered/Resolved]
  - Drug ineffective [Unknown]
  - Application site pain [Recovered/Resolved]
  - Application site erythema [Recovered/Resolved]
  - Burning sensation [Recovered/Resolved]
  - Application site discolouration [Recovered/Resolved]

NARRATIVE: CASE EVENT DATE: 20151204
